FAERS Safety Report 8910101 (Version 1)
Quarter: 2012Q4

REPORT INFORMATION
  Report Type: 
  Country: PL (occurrence: PL)
  Receive Date: 20121115
  Receipt Date: 20121115
  Transmission Date: 20130627
  Serious: Yes (Other)
  Sender: FDA-Public Use
  Company Number: PL-ACTELION-A-CH2012-74332

PATIENT
  Sex: Female

DRUGS (1)
  1. TRACLEER [Suspect]
     Indication: MATERNAL EXPOSURE DURING PREGNANCY
     Dosage: 125 mg, bid
     Route: 064
     Dates: end: 201112

REACTIONS (6)
  - Foetal growth restriction [Unknown]
  - Retinopathy of prematurity [Unknown]
  - Premature baby [Unknown]
  - Maternal exposure during pregnancy [Unknown]
  - Maternal drugs affecting foetus [None]
  - Caesarean section [None]
